FAERS Safety Report 9540816 (Version 3)
Quarter: 2013Q4

REPORT INFORMATION
  Report Type: Report from Study
  Country: KR (occurrence: KR)
  Receive Date: 20130920
  Receipt Date: 20131218
  Transmission Date: 20140711
  Serious: No
  Sender: FDA-Public Use
  Company Number: PHHY2013KR095169

PATIENT
  Age: 62 Year
  Sex: Male

DRUGS (17)
  1. AMN107 [Suspect]
     Indication: CHRONIC MYELOID LEUKAEMIA
     Dosage: 800 MG, PER DAY
     Route: 048
     Dates: start: 20121114, end: 20130108
  2. AMN107 [Suspect]
     Route: 048
     Dates: start: 20130109, end: 20130130
  3. AMN107 [Suspect]
     Dosage: 800 MG, PER DAY
     Route: 048
     Dates: start: 20130131, end: 20130328
  4. AMN107 [Suspect]
     Route: 048
     Dates: start: 20130329, end: 20130416
  5. AMN107 [Suspect]
     Dosage: 800 MG, PER DAY
     Route: 048
     Dates: start: 20130417, end: 20130611
  6. AMN107 [Suspect]
     Route: 048
     Dates: start: 20130612, end: 20130703
  7. AMN107 [Suspect]
     Dosage: 800 MG, PER DAY
     Route: 048
     Dates: start: 20130704, end: 20130828
  8. AMN107 [Suspect]
     Route: 048
     Dates: start: 20130829, end: 20130925
  9. AMN107 [Suspect]
     Dosage: 800 MG, PER DAY
     Route: 048
     Dates: start: 20130926
  10. ADCAL [Concomitant]
     Indication: PROPHYLAXIS
     Dosage: 2 DF, UNK
     Route: 048
     Dates: start: 20121017
  11. BESTIDINE [Concomitant]
     Indication: PROPHYLAXIS
     Dosage: 2 DF, UNK
     Route: 048
     Dates: start: 20121017
  12. FERROBA-U [Concomitant]
     Indication: PROPHYLAXIS
     Dosage: 1 DF, UNK
     Route: 048
     Dates: start: 20121017
  13. FOLIC ACID [Concomitant]
     Indication: PROPHYLAXIS
     Dosage: 2 DF, UNK
     Route: 048
     Dates: start: 20121017
  14. IRCODON [Concomitant]
     Indication: PROPHYLAXIS
     Dosage: 2 DF, UNK
     Route: 048
     Dates: start: 20121017, end: 20130210
  15. K-CONTIN [Concomitant]
     Indication: PROPHYLAXIS
     Dosage: 1 DF, UNK
     Dates: start: 20121017
  16. LEVOSTINE [Concomitant]
     Indication: PROPHYLAXIS
     Dosage: 2 DF, UNK
     Route: 048
     Dates: start: 20121017, end: 20130131
  17. MECOBALAMIN [Concomitant]
     Indication: PROPHYLAXIS
     Dosage: 2 DF, UNK
     Route: 048
     Dates: start: 20121017

REACTIONS (1)
  - Pruritus generalised [Recovered/Resolved]
